FAERS Safety Report 4698171-5 (Version None)
Quarter: 2005Q2

REPORT INFORMATION
  Report Type: 
  Country: None (occurrence: None)
  Receive Date: 20050623
  Receipt Date: 20050615
  Transmission Date: 20051028
  Serious: Yes (Death, Hospitalization)
  Sender: FDA-Public Use
  Company Number: GB-GLAXOSMITHKLINE-B0384598A

PATIENT
  Sex: Female
  Weight: 70 kg

DRUGS (2)
  1. ZYBAN [Suspect]
     Dosage: 750MG PER DAY
     Route: 048
     Dates: start: 20050312
  2. ALCOHOL [Concomitant]

REACTIONS (6)
  - CARDIAC ARREST [None]
  - DEPRESSED LEVEL OF CONSCIOUSNESS [None]
  - GRAND MAL CONVULSION [None]
  - HYPOTHERMIA [None]
  - INTENTIONAL MISUSE [None]
  - STATUS EPILEPTICUS [None]
